FAERS Safety Report 15370622 (Version 1)
Quarter: 2018Q3

REPORT INFORMATION
  Report Type: Report from Study
  Country: US (occurrence: US)
  Receive Date: 20180911
  Receipt Date: 20180911
  Transmission Date: 20181010
  Serious: Yes (Death, Life-Threatening, Other)
  Sender: FDA-Public Use
  Company Number: US-TEVA-2018-US-952648

PATIENT
  Age: 53 Year
  Sex: Female

DRUGS (4)
  1. AMLODIPINE [Suspect]
     Active Substance: AMLODIPINE BESYLATE
     Route: 065
  2. CARISOPRODOL. [Suspect]
     Active Substance: CARISOPRODOL
     Route: 065
  3. DOXEPIN [Suspect]
     Active Substance: DOXEPIN
     Route: 065
  4. CLONAZEPAM. [Suspect]
     Active Substance: CLONAZEPAM
     Route: 065

REACTIONS (12)
  - Electrocardiogram QT prolonged [Unknown]
  - Bradycardia [Unknown]
  - Electrocardiogram QRS complex prolonged [Unknown]
  - Depressed level of consciousness [Unknown]
  - Hypoglycaemia [Unknown]
  - Ventricular arrhythmia [Unknown]
  - Coma [Unknown]
  - Toxicity to various agents [Fatal]
  - Tremor [Unknown]
  - Hypotension [Unknown]
  - Respiratory depression [Unknown]
  - Hyperreflexia [Unknown]
